FAERS Safety Report 21390336 (Version 1)
Quarter: 2022Q3

REPORT INFORMATION
  Report Type: Spontaneous
  Country: IT (occurrence: IT)
  Receive Date: 20220929
  Receipt Date: 20220929
  Transmission Date: 20221027
  Serious: Yes (Other)
  Sender: FDA-Public Use
  Company Number: IT-NOVARTISPH-NVSC2022IT219213

PATIENT
  Sex: Male
  Weight: 2.8 kg

DRUGS (10)
  1. NIFEDIPINE [Suspect]
     Active Substance: NIFEDIPINE
     Indication: Foetal exposure during pregnancy
     Dosage: MATERNAL EXPOSURE DURING PREGNANCY: 30 MG, BID
     Route: 064
  2. METFORMIN [Suspect]
     Active Substance: METFORMIN HYDROCHLORIDE
     Indication: Foetal exposure during pregnancy
     Dosage: MATERNAL EXPOSURE DURING PREGNANCY: 1000 MG, FROM 6 WEEKS BEFORE CONCEPTION TO THE FIRST 15 WEEKS OF
     Route: 064
  3. ATORVASTATIN [Suspect]
     Active Substance: ATORVASTATIN
     Indication: Foetal exposure during pregnancy
     Dosage: MATERNAL EXPOSURE DURING PREGNANCY: 20 MG, QD
     Route: 064
  4. DULAGLUTIDE [Suspect]
     Active Substance: DULAGLUTIDE
     Indication: Foetal exposure during pregnancy
     Dosage: MATERNAL EXPOSURE DURING PREGNANCY: 1.5 MG, QW
     Route: 064
     Dates: start: 202104
  5. INSULIN LISPRO [Suspect]
     Active Substance: INSULIN LISPRO
     Indication: Foetal exposure during pregnancy
     Dosage: MATERNAL EXPOSURE DURING PREGNANCY:5 U, AT EACH MEAL
     Route: 064
  6. INSULIN LISPRO [Suspect]
     Active Substance: INSULIN LISPRO
     Dosage: MATERNAL EXPOSURE DURING PREGNANCY:8 U AT BREAKFAST AND LUNCH
     Route: 064
  7. INSULIN LISPRO [Suspect]
     Active Substance: INSULIN LISPRO
     Dosage: MATERNAL EXPOSURE DURING PREGNANCY:10 U AT DINNER
     Route: 064
  8. INSULIN GLARGINE [Suspect]
     Active Substance: INSULIN GLARGINE
     Indication: Foetal exposure during pregnancy
     Dosage: MATERNAL EXPOSURE DURING PREGNANCY: 5 U BEDTIME
     Route: 064
  9. METHYLDOPA [Suspect]
     Active Substance: METHYLDOPA
     Indication: Foetal exposure during pregnancy
     Dosage: MATERNAL EXPOSURE DURING PREGNANCY: 250 MG, BID
     Route: 064
  10. INSULIN NOS [Suspect]
     Active Substance: INSULIN NOS
     Indication: Foetal exposure during pregnancy
     Dosage: MATERNAL EXPOSURE DURING PREGNANCY: 46 U, BEDTIME
     Route: 064

REACTIONS (2)
  - Jaundice neonatal [Recovered/Resolved]
  - Foetal exposure during pregnancy [Unknown]
